FAERS Safety Report 15750502 (Version 2)
Quarter: 2019Q1

REPORT INFORMATION
  Report Type: Spontaneous
  Country: FR (occurrence: FR)
  Receive Date: 20181221
  Receipt Date: 20190123
  Transmission Date: 20190417
  Serious: Yes (Other)
  Sender: FDA-Public Use
  Company Number: FR-009507513-1812FRA008135

PATIENT
  Age: 72 Year
  Sex: Male

DRUGS (4)
  1. ASCORBIC ACID. [Concomitant]
     Active Substance: ASCORBIC ACID
     Dosage: 2 TO 3 PER DAY
  2. TEMODAL [Suspect]
     Active Substance: TEMOZOLOMIDE
     Dosage: CYCLE
     Route: 048
     Dates: start: 20181221, end: 20181225
  3. TEMODAL [Suspect]
     Active Substance: TEMOZOLOMIDE
     Indication: GLIOBLASTOMA
     Dosage: IN MONOTHERAPY ON THE BASIS OF A BODY SURFACE OF 1.8 M2: 200 MG FOR THE 1ST CYCLE
     Route: 048
     Dates: start: 201810, end: 2018
  4. TEMODAL [Suspect]
     Active Substance: TEMOZOLOMIDE
     Dosage: IN MONOTHERAPY ON THE BASIS OF A BODY SURFACE OF 1.8 M2: 360 MG FOR THE 2ND CYCLE
     Route: 048
     Dates: start: 2018, end: 2018

REACTIONS (10)
  - Toothache [Not Recovered/Not Resolved]
  - Arrhythmia [Unknown]
  - Vomiting [Unknown]
  - Oral pain [Not Recovered/Not Resolved]
  - Gingival pain [Not Recovered/Not Resolved]
  - Fall [Unknown]
  - Malaise [Unknown]
  - Facial pain [Not Recovered/Not Resolved]
  - Transaminases increased [Unknown]
  - Asthenia [Unknown]

NARRATIVE: CASE EVENT DATE: 2018
